FAERS Safety Report 17707936 (Version 2)
Quarter: 2020Q3

REPORT INFORMATION
  Report Type: Report from Study
  Country: None (occurrence: US)
  Receive Date: 20200425
  Receipt Date: 20200715
  Transmission Date: 20201102
  Serious: Yes (Hospitalization)
  Sender: FDA-Public Use
  Company Number: US-ABBVIE-20K-163-3372256-00

PATIENT
  Sex: Male

DRUGS (4)
  1. HUMIRA [Suspect]
     Active Substance: ADALIMUMAB
     Route: 058
  2. PREDNISONE. [Concomitant]
     Active Substance: PREDNISONE
     Indication: PRODUCT USED FOR UNKNOWN INDICATION
  3. HUMIRA [Suspect]
     Active Substance: ADALIMUMAB
     Indication: CROHN^S DISEASE
     Route: 058
  4. HUMIRA [Suspect]
     Active Substance: ADALIMUMAB
     Route: 058

REACTIONS (14)
  - Intestinal stenosis [Unknown]
  - Gastrointestinal inflammation [Unknown]
  - Stress [Unknown]
  - Asthenia [Unknown]
  - Discharge [Unknown]
  - Hyperglycaemia [Unknown]
  - Dyspnoea [Unknown]
  - Nausea [Unknown]
  - Crohn^s disease [Unknown]
  - Weight increased [Unknown]
  - Throat irritation [Unknown]
  - Abdominal distension [Unknown]
  - Hypotonia [Unknown]
  - Weight decreased [Unknown]

NARRATIVE: CASE EVENT DATE: 2020
